FAERS Safety Report 7498694-X (Version None)
Quarter: 2011Q2

REPORT INFORMATION
  Report Type: 
  Country: None (occurrence: None)
  Receive Date: 20110516
  Receipt Date: 20110425
  Transmission Date: 20111010
  Serious: Yes (Other)
  Sender: FDA-Public Use
  Company Number: AUR-APL-2011-01504

PATIENT
  Age: 80 Year
  Sex: Female

DRUGS (8)
  1. ACCUPRIL [Suspect]
     Dosage: 40MG
  2. NORVASC [Suspect]
     Dosage: 5MG
  3. QUINAPRIL FILM-COATED TABLET [Suspect]
  4. METOPROLOL TARTRATE [Suspect]
  5. AMLODIPINE BESYLATE [Suspect]
  6. TOPROL-XL [Suspect]
     Dosage: 100MG
  7. LIPITOR [Suspect]
     Dosage: 10MG
  8. ATORVASTATIN CALCIUM [Suspect]

REACTIONS (9)
  - PRODUCT SUBSTITUTION ISSUE [None]
  - DEHYDRATION [None]
  - BRONCHOPNEUMONIA [None]
  - ECONOMIC PROBLEM [None]
  - VOMITING [None]
  - FALL [None]
  - NAUSEA [None]
  - DIARRHOEA [None]
  - TREATMENT NONCOMPLIANCE [None]
